FAERS Safety Report 12072870 (Version 1)
Quarter: 2016Q1

REPORT INFORMATION
  Report Type: Spontaneous
  Country: SG (occurrence: SG)
  Receive Date: 20160212
  Receipt Date: 20160212
  Transmission Date: 20160526
  Serious: Yes (Other)
  Sender: FDA-Public Use
  Company Number: SG-IPCA LABORATORIES LIMITED-IPC201602-000056

PATIENT

DRUGS (1)
  1. WARFARIN [Suspect]
     Active Substance: WARFARIN

REACTIONS (3)
  - Ruptured cerebral aneurysm [Unknown]
  - Coma scale abnormal [Unknown]
  - Cerebral haematoma [Unknown]
